FAERS Safety Report 25063994 (Version 1)
Quarter: 2025Q1

REPORT INFORMATION
  Report Type: Spontaneous
  Country: CN (occurrence: CN)
  Receive Date: 20250311
  Receipt Date: 20250311
  Transmission Date: 20250408
  Serious: Yes (Other)
  Sender: ACCORD
  Company Number: None

PATIENT
  Age: 57 Year
  Sex: Female
  Weight: 68 kg

DRUGS (4)
  1. TRASTUZUMAB [Suspect]
     Active Substance: TRASTUZUMAB
     Indication: Breast cancer
     Dosage: 432 MILLIGRAM, QD, STRENGTH: 150 MILLIGRAM, IV DRIP
     Route: 042
     Dates: start: 20241031, end: 20241031
  2. PERJETA [Suspect]
     Active Substance: PERTUZUMAB
     Indication: Breast cancer
     Dosage: 0.42 GRAM, QD, IV DRIP
     Route: 042
     Dates: start: 20241031, end: 20241031
  3. PACLITAXEL [Suspect]
     Active Substance: PACLITAXEL
     Indication: Breast cancer
     Dosage: 0.4 GRAM, QD, IV DRIP
     Route: 042
     Dates: start: 20241031, end: 20241031
  4. CARBOPLATIN [Suspect]
     Active Substance: CARBOPLATIN
     Indication: Breast cancer
     Dosage: 0.9 GRAM, QD, IV DRIP
     Route: 042
     Dates: start: 20241031, end: 20241031

REACTIONS (1)
  - Bicytopenia [Recovering/Resolving]

NARRATIVE: CASE EVENT DATE: 20241114
